FAERS Safety Report 16970449 (Version 3)
Quarter: 2020Q3

REPORT INFORMATION
  Report Type: Report from Study
  Country: JP (occurrence: JP)
  Receive Date: 20191029
  Receipt Date: 20191122
  Transmission Date: 20201104
  Serious: Yes (Hospitalization)
  Sender: FDA-Public Use
  Company Number: JP-PFIZER INC-2019446126

PATIENT
  Age: 82 Year
  Sex: Male
  Weight: 59.9 kg

DRUGS (13)
  1. DAPAGLIFLOZIN PROPANEDIOL MONOHYDRATE [Concomitant]
     Active Substance: DAPAGLIFLOZIN PROPANEDIOL
     Indication: DIABETES MELLITUS
     Dosage: 5 MG, 1X/DAY, DAPAGLIFLOZIN PROPYLENE GLYCOLATE HYDRATE
     Route: 048
     Dates: start: 20190215
  2. SITAGLIPTIN PHOSPHATE MONOHYDRATE [Concomitant]
     Active Substance: SITAGLIPTIN PHOSPHATE
     Indication: DIABETES MELLITUS
     Dosage: 50 MG, 1X/DAY, SITAGLIPTIN PHOSPHATE HYDRATE
     Route: 048
     Dates: start: 20190130
  3. UREA. [Concomitant]
     Active Substance: UREA
     Indication: PRURITUS
     Dosage: UNK, AS NEEDED
     Route: 062
     Dates: start: 20190308
  4. FERROUS SULFATE. [Concomitant]
     Active Substance: FERROUS SULFATE
     Indication: ANAEMIA
     Dosage: DRIED FERROUS SULFATE, 105 MG, 1X/DAY
     Route: 048
     Dates: start: 20191010
  5. SILODOSIN. [Concomitant]
     Active Substance: SILODOSIN
     Indication: DYSURIA
     Dosage: 8 MG, 2X/DAY
     Route: 048
     Dates: start: 20190118
  6. METFORMIN HYDROCHLORIDE. [Concomitant]
     Active Substance: METFORMIN HYDROCHLORIDE
     Indication: DIABETES MELLITUS
     Dosage: 1500 MG, 3X/DAY
     Route: 048
     Dates: start: 20190130
  7. SIMVASTATIN. [Concomitant]
     Active Substance: SIMVASTATIN
     Indication: DYSLIPIDAEMIA
     Dosage: 5 MG, 1X/DAY
     Route: 048
     Dates: start: 20190130
  8. DIPHENHYDRAMINE. [Concomitant]
     Active Substance: DIPHENHYDRAMINE
     Indication: PRURITUS
     Dosage: UNK, AS NEEDED
     Route: 062
     Dates: start: 20171208
  9. TALAZOPARIB. [Suspect]
     Active Substance: TALAZOPARIB
     Indication: PROSTATE CANCER METASTATIC
     Dosage: UNK UNK, 1X/DAY
     Route: 048
     Dates: start: 20190829, end: 20191010
  10. GLIMEPIRIDE. [Concomitant]
     Active Substance: GLIMEPIRIDE
     Indication: DIABETES MELLITUS
     Dosage: 0.5 MG, 1X/DAY
     Route: 048
     Dates: start: 20190208
  11. ENZALUTAMIDE [Suspect]
     Active Substance: ENZALUTAMIDE
     Indication: PROSTATE CANCER METASTATIC
     Dosage: 160 MG, 1X/DAY
     Route: 048
     Dates: start: 20190829, end: 20191010
  12. GOSERELIN ACETATE [Concomitant]
     Active Substance: GOSERELIN ACETATE
     Indication: PROSTATE CANCER
     Dosage: 10.8 MG, FOUR TIMES PER YEAR
     Route: 058
     Dates: start: 20190227
  13. HIRUDOID [Concomitant]
     Active Substance: GLYCOSAMINOGLYCANS
     Indication: PRURITUS
     Dosage: UNK, AS NEEDED
     Route: 062
     Dates: start: 20190412

REACTIONS (1)
  - Bacteraemia [Recovered/Resolved]

NARRATIVE: CASE EVENT DATE: 20191012
